FAERS Safety Report 7319846-5 (Version None)
Quarter: 2011Q1

REPORT INFORMATION
  Report Type: 
  Country: None (occurrence: None)
  Receive Date: 20110228
  Receipt Date: 20101022
  Transmission Date: 20110831
  Serious: No
  Sender: FDA-Public Use
  Company Number: A0888328A

PATIENT
  Age: 67 Year
  Sex: Female

DRUGS (6)
  1. ATENOLOL [Concomitant]
  2. LAMOTRIGINE [Suspect]
     Indication: BIPOLAR II DISORDER
     Route: 048
  3. SYNTHROID [Concomitant]
  4. LITHIUM [Concomitant]
  5. COZAAR [Concomitant]
  6. LAMICTAL [Suspect]
     Indication: BIPOLAR II DISORDER
     Dosage: 225MG PER DAY
     Route: 048
     Dates: start: 20070101

REACTIONS (6)
  - DEPRESSION [None]
  - ASTHENIA [None]
  - DEPERSONALISATION [None]
  - SKIN DISCOLOURATION [None]
  - IRRITABILITY [None]
  - FEELING ABNORMAL [None]
